FAERS Safety Report 7981195-X (Version None)
Quarter: 2011Q4

REPORT INFORMATION
  Report Type: 
  Country: None (occurrence: None)
  Receive Date: 20111215
  Receipt Date: 20111205
  Transmission Date: 20120403
  Serious: Yes (Hospitalization, Other)
  Sender: FDA-Public Use
  Company Number: US-BAYER-2011-036813

PATIENT
  Age: 27 Year
  Sex: Female
  Weight: 94 kg

DRUGS (6)
  1. METFORMIN HCL [Concomitant]
     Indication: DIABETES MELLITUS
     Dosage: 500 MG, BID
     Dates: start: 20050415, end: 20050801
  2. YASMIN [Suspect]
     Indication: MENOMETRORRHAGIA
     Dosage: UNK
     Dates: start: 20050415, end: 20050817
  3. MARIJUANA [Concomitant]
  4. AVELOX [Concomitant]
     Dosage: 400 MG, UNK
  5. MOBIC [Concomitant]
  6. PROMETRIUM [Concomitant]
     Indication: MENOMETRORRHAGIA
     Dosage: UNK
     Dates: start: 20050331, end: 20050409

REACTIONS (9)
  - PULMONARY EMBOLISM [None]
  - EMOTIONAL DISTRESS [None]
  - HIGH RISK PREGNANCY [None]
  - DYSPNOEA [None]
  - PAIN [None]
  - FATIGUE [None]
  - PULMONARY INFARCTION [None]
  - ANXIETY [None]
  - FEAR OF DISEASE [None]
